FAERS Safety Report 22001282 (Version 1)
Quarter: 2023Q1

REPORT INFORMATION
  Report Type: Report from Study
  Country: ES (occurrence: ES)
  Receive Date: 20230216
  Receipt Date: 20230216
  Transmission Date: 20230417
  Serious: Yes (Death, Other)
  Sender: FDA-Public Use
  Company Number: ES-JNJFOC-20230217656

PATIENT

DRUGS (6)
  1. BORTEZOMIB [Suspect]
     Active Substance: BORTEZOMIB
     Indication: Plasma cell myeloma
     Dosage: UNK
     Route: 065
  2. DEXAMETHASONE [Suspect]
     Active Substance: DEXAMETHASONE
     Indication: Plasma cell myeloma
     Dosage: UNK
     Route: 065
  3. DEXAMETHASONE [Suspect]
     Active Substance: DEXAMETHASONE
     Dosage: 20 MILLIGRAM
     Route: 065
  4. CYCLOPHOSPHAMIDE [Suspect]
     Active Substance: CYCLOPHOSPHAMIDE
     Indication: Plasma cell myeloma
     Dosage: UNK
     Route: 065
  5. ISATUXIMAB [Suspect]
     Active Substance: ISATUXIMAB
     Indication: Plasma cell myeloma
     Dosage: 10 MILLIGRAM/KILOGRAM
     Route: 065
  6. ISATUXIMAB [Suspect]
     Active Substance: ISATUXIMAB
     Dosage: 20 MILLIGRAM/KILOGRAM
     Route: 065

REACTIONS (16)
  - Sudden death [Fatal]
  - Pneumonia [Fatal]
  - Appendicitis [Unknown]
  - Mesenteric vein thrombosis [Unknown]
  - Bronchospasm [Unknown]
  - Infusion related reaction [Unknown]
  - Septic shock [Unknown]
  - Neutropenia [Unknown]
  - Thrombocytopenia [Unknown]
  - Respiratory tract infection [Unknown]
  - Gastroenteritis [Unknown]
  - Anaemia [Unknown]
  - Hypertension [Unknown]
  - Back pain [Unknown]
  - Peripheral sensory neuropathy [Unknown]
  - Diarrhoea [Unknown]
